FAERS Safety Report 19670373 (Version 1)
Quarter: 2021Q3

REPORT INFORMATION
  Report Type: Spontaneous
  Country: US (occurrence: US)
  Receive Date: 20210806
  Receipt Date: 20210806
  Transmission Date: 20211014
  Serious: Yes (Hospitalization)
  Sender: FDA-Public Use
  Company Number: US-SAOL THERAPEUTICS-2020SAO00246

PATIENT
  Age: 60 Year
  Sex: Male
  Weight: 82.99 kg

DRUGS (6)
  1. LIORESAL [Suspect]
     Active Substance: BACLOFEN
     Indication: POST LAMINECTOMY SYNDROME
     Dosage: 239.93 ?G, \DAY
     Route: 037
  2. SUFENTA [Suspect]
     Active Substance: SUFENTANIL CITRATE
     Indication: PAIN
  3. LIORESAL [Suspect]
     Active Substance: BACLOFEN
     Indication: PAIN
  4. MORPHINE [Suspect]
     Active Substance: MORPHINE
     Indication: POST LAMINECTOMY SYNDROME
     Dosage: 0.3037 MG, \DAY
     Route: 037
  5. SUFENTA [Suspect]
     Active Substance: SUFENTANIL CITRATE
     Indication: POST LAMINECTOMY SYNDROME
     Dosage: 1.7008 ?G, \DAY
     Route: 037
  6. MORPHINE [Suspect]
     Active Substance: MORPHINE
     Indication: PAIN

REACTIONS (6)
  - Back pain [Recovered/Resolved]
  - Hot flush [Recovered/Resolved]
  - Anxiety [Recovered/Resolved]
  - Underdose [Recovered/Resolved]
  - Off label use [Not Recovered/Not Resolved]
  - Drug withdrawal syndrome [Recovered/Resolved]

NARRATIVE: CASE EVENT DATE: 20200728
